FAERS Safety Report 6992281-5 (Version None)
Quarter: 2010Q3

REPORT INFORMATION
  Report Type: 
  Country: None (occurrence: None)
  Receive Date: 20100917
  Receipt Date: 20100914
  Transmission Date: 20110219
  Serious: Yes (Hospitalization)
  Sender: FDA-Public Use
  Company Number: JP-EISAI INC.-E2090-01289-SPO-JP

PATIENT
  Age: 57 Year
  Sex: Female

DRUGS (4)
  1. EXCEGRAN [Suspect]
     Indication: EPILEPSY
     Route: 048
     Dates: start: 20010901
  2. NORVASC [Concomitant]
     Route: 048
     Dates: start: 20010901
  3. DEPAS [Concomitant]
     Route: 048
     Dates: start: 20010901
  4. SOLANAX [Concomitant]
     Route: 048
     Dates: start: 20010901

REACTIONS (1)
  - FRACTURE [None]
